FAERS Safety Report 16946067 (Version 7)
Quarter: 2025Q1

REPORT INFORMATION
  Report Type: Spontaneous
  Country: US (occurrence: US)
  Receive Date: 20191022
  Receipt Date: 20250325
  Transmission Date: 20250408
  Serious: Yes (Other)
  Sender: PFIZER
  Company Number: US-PFIZER INC-2019448857

PATIENT
  Age: 70 Year
  Sex: Male
  Weight: 88.435 kg

DRUGS (11)
  1. XELJANZ XR [Suspect]
     Active Substance: TOFACITINIB CITRATE
     Indication: Rheumatoid arthritis
     Dosage: 11 MG, 1X/DAY
     Dates: start: 201808
  2. XELJANZ XR [Suspect]
     Active Substance: TOFACITINIB CITRATE
     Dosage: 11 MG, 1X/DAY
  3. ALBUTEROL [Concomitant]
     Active Substance: ALBUTEROL
  4. ASPIRIN [Concomitant]
     Active Substance: ASPIRIN
  5. BETA CAROTENE [Concomitant]
     Active Substance: BETA CAROTENE
  6. CALCIUM [Concomitant]
     Active Substance: CALCIUM
  7. HYDROCHLOROTHIAZIDE [Concomitant]
     Active Substance: HYDROCHLOROTHIAZIDE
  8. LEFLUNOMIDE [Concomitant]
     Active Substance: LEFLUNOMIDE
  9. MAGNESIUM [Concomitant]
     Active Substance: MAGNESIUM
  10. TAMSULOSIN [Concomitant]
     Active Substance: TAMSULOSIN
  11. VALSARTAN [Concomitant]
     Active Substance: VALSARTAN

REACTIONS (4)
  - Vascular operation [Unknown]
  - Condition aggravated [Not Recovered/Not Resolved]
  - Sensitivity to weather change [Unknown]
  - Fatigue [Recovering/Resolving]

NARRATIVE: CASE EVENT DATE: 20191015
